FAERS Safety Report 10649346 (Version 1)
Quarter: 2014Q4

REPORT INFORMATION
  Report Type: Spontaneous
  Country: FR (occurrence: FR)
  Receive Date: 20141212
  Receipt Date: 20141212
  Transmission Date: 20150529
  Serious: Yes (Other)
  Sender: FDA-Public Use
  Company Number: FR-JNJFOC-20141207408

PATIENT

DRUGS (2)
  1. METHOTREXATE [Concomitant]
     Active Substance: METHOTREXATE
     Dosage: BETWEEN 7.5 TO 10 MG PER WEEK
     Route: 065
  2. REMICADE [Suspect]
     Active Substance: INFLIXIMAB
     Indication: ERDHEIM-CHESTER DISEASE
     Route: 042

REACTIONS (2)
  - Pneumocystis jirovecii pneumonia [Unknown]
  - Product use issue [Unknown]
